FAERS Safety Report 19153221 (Version 7)
Quarter: 2021Q3

REPORT INFORMATION
  Report Type: Report from Study
  Country: CN (occurrence: CN)
  Receive Date: 20210419
  Receipt Date: 20210918
  Transmission Date: 20211014
  Serious: Yes (Hospitalization, Disabling)
  Sender: FDA-Public Use
  Company Number: CN-ROCHE-2809256

PATIENT
  Age: 71 Year
  Sex: Male
  Weight: 70 kg

DRUGS (76)
  1. CARBOPLATIN. [Suspect]
     Active Substance: CARBOPLATIN
     Indication: NON-SMALL CELL LUNG CANCER
     Dosage: DOSE LAST STUDY DRUG ADMIN PRIOR AE IS 568 MG?START DATE OF MOST RECENT DOSE OF STUDY DRUG PRIOR TO
     Route: 042
     Dates: start: 20200708
  2. DEXAMETHASONE ACETATE [Concomitant]
     Active Substance: DEXAMETHASONE ACETATE
     Route: 048
     Dates: start: 20200729, end: 20200730
  3. DEXAMETHASONE ACETATE [Concomitant]
     Active Substance: DEXAMETHASONE ACETATE
     Route: 048
     Dates: start: 20210219, end: 20210219
  4. LEUCOGEN [Concomitant]
     Active Substance: LEUCOGEN
     Dates: start: 20200730, end: 20200814
  5. LEUCOGEN [Concomitant]
     Active Substance: LEUCOGEN
     Dates: start: 20200911, end: 20200926
  6. ONDANSETRON HYDROCHLORIDE. [Concomitant]
     Active Substance: ONDANSETRON HYDROCHLORIDE
     Dates: start: 20210221, end: 20210226
  7. TROPISETRON HYDROCHLORIDE [Concomitant]
     Active Substance: TROPISETRON HYDROCHLORIDE
     Dates: start: 20200820, end: 20200820
  8. TROPISETRON HYDROCHLORIDE [Concomitant]
     Active Substance: TROPISETRON HYDROCHLORIDE
     Dates: start: 20200906, end: 20200906
  9. MECOBALAMIN [Concomitant]
     Active Substance: METHYLCOBALAMIN
     Dates: start: 20210225
  10. DIAMMONIUM GLYCYRRHIZINATE [Concomitant]
     Active Substance: HERBALS\DIAMMONIUM GLYCYRRHIZINATE
     Dates: start: 20210129, end: 20210211
  11. LYRICA [Concomitant]
     Active Substance: PREGABALIN
     Route: 048
     Dates: start: 20210325, end: 20210409
  12. FOLIC ACID. [Concomitant]
     Active Substance: FOLIC ACID
     Dates: start: 20200701
  13. OMEPRAZOLE MAGNESIUM. [Concomitant]
     Active Substance: OMEPRAZOLE MAGNESIUM
     Dates: start: 20201012, end: 20201012
  14. DEXAMETHASONE ACETATE [Concomitant]
     Active Substance: DEXAMETHASONE ACETATE
     Route: 048
     Dates: start: 20200728, end: 20200728
  15. DEXAMETHASONE ACETATE [Concomitant]
     Active Substance: DEXAMETHASONE ACETATE
     Route: 048
     Dates: start: 20210315, end: 20210315
  16. ONDANSETRON HYDROCHLORIDE. [Concomitant]
     Active Substance: ONDANSETRON HYDROCHLORIDE
     Dates: start: 20200821, end: 20200826
  17. ONDANSETRON HYDROCHLORIDE. [Concomitant]
     Active Substance: ONDANSETRON HYDROCHLORIDE
     Dates: start: 20201126, end: 20201201
  18. LANSOPRAZOLE. [Concomitant]
     Active Substance: LANSOPRAZOLE
     Dates: start: 20201013, end: 20201013
  19. TROPISETRON HYDROCHLORIDE [Concomitant]
     Active Substance: TROPISETRON HYDROCHLORIDE
     Dates: start: 20201013, end: 20201013
  20. VITAMIN B6 [Concomitant]
     Active Substance: PYRIDOXINE HYDROCHLORIDE
     Dates: start: 20201013, end: 20201013
  21. VITAMIN B1 [Concomitant]
     Active Substance: THIAMINE HYDROCHLORIDE
     Indication: NEURITIS
     Route: 048
     Dates: start: 20210225
  22. OMEPRAZOLE MAGNESIUM. [Concomitant]
     Active Substance: OMEPRAZOLE MAGNESIUM
     Dates: start: 20200728, end: 20200729
  23. DEXAMETHASONE ACETATE [Concomitant]
     Active Substance: DEXAMETHASONE ACETATE
     Route: 048
     Dates: start: 20200819, end: 20200819
  24. DEXAMETHASONE ACETATE [Concomitant]
     Active Substance: DEXAMETHASONE ACETATE
     Route: 048
     Dates: start: 20201012, end: 20201012
  25. DEXAMETHASONE ACETATE [Concomitant]
     Active Substance: DEXAMETHASONE ACETATE
     Route: 048
     Dates: start: 20210106, end: 20210106
  26. DEXAMETHASONE ACETATE [Concomitant]
     Active Substance: DEXAMETHASONE ACETATE
     Route: 048
     Dates: start: 20210108, end: 20210108
  27. LEUCOGEN [Concomitant]
     Active Substance: LEUCOGEN
     Dates: start: 20201218, end: 20201231
  28. TROPISETRON HYDROCHLORIDE [Concomitant]
     Active Substance: TROPISETRON HYDROCHLORIDE
     Dates: start: 20200729, end: 20200729
  29. VITAMIN B6 [Concomitant]
     Active Substance: PYRIDOXINE HYDROCHLORIDE
     Dates: start: 20200820, end: 20200820
  30. BEVACIZUMAB. [Suspect]
     Active Substance: BEVACIZUMAB
     Indication: NON-SMALL CELL LUNG CANCER
     Dosage: DOSE LAST STUDY DRUG ADMIN PRIOR AE IS 1050 MG?START DATE OF MOST RECENT DOSE OF STUDY DRUG PRIOR TO
     Route: 042
     Dates: start: 20200708
  31. BETALOC ZOK [Concomitant]
     Active Substance: METOPROLOL SUCCINATE
     Indication: HYPERTENSION
     Dates: start: 2011
  32. OMEPRAZOLE MAGNESIUM. [Concomitant]
     Active Substance: OMEPRAZOLE MAGNESIUM
     Dates: start: 20200819, end: 20200819
  33. DEXAMETHASONE ACETATE [Concomitant]
     Active Substance: DEXAMETHASONE ACETATE
     Route: 048
     Dates: start: 20200822, end: 20200822
  34. DEXAMETHASONE ACETATE [Concomitant]
     Active Substance: DEXAMETHASONE ACETATE
     Route: 048
     Dates: start: 20201125, end: 20201126
  35. DEXAMETHASONE ACETATE [Concomitant]
     Active Substance: DEXAMETHASONE ACETATE
     Route: 048
     Dates: start: 20210129, end: 20210130
  36. LEUCOGEN [Concomitant]
     Active Substance: LEUCOGEN
     Dates: start: 20210221, end: 20210308
  37. ONDANSETRON HYDROCHLORIDE. [Concomitant]
     Active Substance: ONDANSETRON HYDROCHLORIDE
     Dates: start: 20200911, end: 20200916
  38. TROPISETRON HYDROCHLORIDE [Concomitant]
     Active Substance: TROPISETRON HYDROCHLORIDE
     Dates: start: 20210316, end: 20210316
  39. MECOBALAMIN [Concomitant]
     Active Substance: METHYLCOBALAMIN
     Dates: start: 20200911, end: 20200923
  40. DIAMMONIUM GLYCYRRHIZINATE [Concomitant]
     Active Substance: HERBALS\DIAMMONIUM GLYCYRRHIZINATE
     Dates: start: 20201126, end: 20201210
  41. BLINDED ATEZOLIZUMAB [Suspect]
     Active Substance: ATEZOLIZUMAB
     Indication: NON-SMALL CELL LUNG CANCER
     Dosage: START DATE OF MOST RECENT DOSE OF STUDY DRUG PRIOR TO AE: 20/AUG/2020?START DATE OF MOST RECENT DOSE
     Route: 041
     Dates: start: 20200708
  42. PEMETREXED. [Suspect]
     Active Substance: PEMETREXED
     Indication: NON-SMALL CELL LUNG CANCER
     Dosage: DOSE LAST STUDY DRUG ADMIN PRIOR AE IS 910 MG (24/AUG/2020) AND PRIOR SAE 920 MG (16/MAR/2021)
     Route: 042
     Dates: start: 20200708
  43. DEXAMETHASONE ACETATE [Concomitant]
     Active Substance: DEXAMETHASONE ACETATE
     Route: 048
     Dates: start: 20200820, end: 20200822
  44. DEXAMETHASONE ACETATE [Concomitant]
     Active Substance: DEXAMETHASONE ACETATE
     Route: 048
     Dates: start: 20200910, end: 20200911
  45. DEXAMETHASONE ACETATE [Concomitant]
     Active Substance: DEXAMETHASONE ACETATE
     Route: 048
     Dates: start: 20200912, end: 20200912
  46. DEXAMETHASONE ACETATE [Concomitant]
     Active Substance: DEXAMETHASONE ACETATE
     Route: 048
     Dates: start: 20201013, end: 20201014
  47. DEXAMETHASONE ACETATE [Concomitant]
     Active Substance: DEXAMETHASONE ACETATE
     Route: 048
     Dates: start: 20201216, end: 20201216
  48. LEUCOGEN [Concomitant]
     Active Substance: LEUCOGEN
     Dates: start: 20210129
  49. ONDANSETRON HYDROCHLORIDE. [Concomitant]
     Active Substance: ONDANSETRON HYDROCHLORIDE
     Dates: start: 20201105, end: 20201110
  50. ONDANSETRON HYDROCHLORIDE. [Concomitant]
     Active Substance: ONDANSETRON HYDROCHLORIDE
     Dates: start: 20201218, end: 20201223
  51. ONDANSETRON HYDROCHLORIDE. [Concomitant]
     Active Substance: ONDANSETRON HYDROCHLORIDE
     Dates: start: 20210129, end: 20210203
  52. LANSOPRAZOLE. [Concomitant]
     Active Substance: LANSOPRAZOLE
     Dates: start: 20200729, end: 20200729
  53. LANSOPRAZOLE. [Concomitant]
     Active Substance: LANSOPRAZOLE
     Dates: start: 20200820, end: 20200820
  54. DIAMMONIUM GLYCYRRHIZINATE [Concomitant]
     Active Substance: HERBALS\DIAMMONIUM GLYCYRRHIZINATE
     Dates: start: 20201105, end: 20201118
  55. GLYCYRRHIZIN DIAMINE [Concomitant]
     Dates: start: 20210221, end: 20210306
  56. PREGABALIN. [Concomitant]
     Active Substance: PREGABALIN
  57. LEUCOGEN [Concomitant]
     Active Substance: LEUCOGEN
     Dates: start: 20200821, end: 20200905
  58. LEUCOGEN [Concomitant]
     Active Substance: LEUCOGEN
     Dates: start: 20201105, end: 20201112
  59. LEUCOGEN [Concomitant]
     Active Substance: LEUCOGEN
     Dates: start: 20201125, end: 20201210
  60. IRBESARTAN AND HYDROCHLOROTHIAZIDE [Concomitant]
     Active Substance: HYDROCHLOROTHIAZIDE\IRBESARTAN
     Indication: HYPERTENSION
     Dates: start: 2011
  61. DEXAMETHASONE ACETATE [Concomitant]
     Active Substance: DEXAMETHASONE ACETATE
     Route: 048
     Dates: start: 20200731, end: 20200731
  62. DEXAMETHASONE ACETATE [Concomitant]
     Active Substance: DEXAMETHASONE ACETATE
     Route: 048
     Dates: start: 20201124, end: 20201124
  63. DEXAMETHASONE ACETATE [Concomitant]
     Active Substance: DEXAMETHASONE ACETATE
     Route: 048
     Dates: start: 20210109, end: 20210109
  64. DEXAMETHASONE ACETATE [Concomitant]
     Active Substance: DEXAMETHASONE ACETATE
     Route: 048
     Dates: start: 20210221, end: 20210222
  65. LEUCOGEN [Concomitant]
     Active Substance: LEUCOGEN
     Dates: start: 20210108, end: 20210119
  66. ONDANSETRON HYDROCHLORIDE. [Concomitant]
     Active Substance: ONDANSETRON HYDROCHLORIDE
     Dates: start: 20200730, end: 20200804
  67. VITAMIN B6 [Concomitant]
     Active Substance: PYRIDOXINE HYDROCHLORIDE
     Dates: start: 20200729, end: 20200729
  68. VITAMIN B6 [Concomitant]
     Active Substance: PYRIDOXINE HYDROCHLORIDE
     Dates: start: 20200906, end: 20200906
  69. VITAMIN B6 [Concomitant]
     Active Substance: PYRIDOXINE HYDROCHLORIDE
     Dates: start: 20210316, end: 20210316
  70. DUPHALAC [Concomitant]
     Active Substance: LACTULOSE
     Indication: CONSTIPATION
     Dates: start: 20200910, end: 20200910
  71. OMEPRAZOLE MAGNESIUM. [Concomitant]
     Active Substance: OMEPRAZOLE MAGNESIUM
     Dates: start: 20200820, end: 20200826
  72. OMEPRAZOLE MAGNESIUM. [Concomitant]
     Active Substance: OMEPRAZOLE MAGNESIUM
     Dates: start: 20200911, end: 20200917
  73. DEXAMETHASONE ACETATE [Concomitant]
     Active Substance: DEXAMETHASONE ACETATE
     Route: 048
     Dates: start: 20201217, end: 20201217
  74. LANSOPRAZOLE. [Concomitant]
     Active Substance: LANSOPRAZOLE
     Dates: start: 20200906, end: 20200906
  75. LANSOPRAZOLE. [Concomitant]
     Active Substance: LANSOPRAZOLE
     Dates: start: 20210316, end: 20210316
  76. AFATINIB [Concomitant]
     Active Substance: AFATINIB

REACTIONS (1)
  - Guillain-Barre syndrome [Recovered/Resolved]

NARRATIVE: CASE EVENT DATE: 20200824
